FAERS Safety Report 8509627-9 (Version None)
Quarter: 2012Q3

REPORT INFORMATION
  Report Type: 
  Country: None (occurrence: None)
  Receive Date: 20120713
  Receipt Date: 20120704
  Transmission Date: 20120928
  Serious: Yes (Hospitalization)
  Sender: FDA-Public Use
  Company Number: TW-JNJFOC-20120607291

PATIENT
  Sex: Male
  Weight: 48 kg

DRUGS (5)
  1. AMILORIDE HCL AND HYDROCHLOROTHIAZIDE [Suspect]
     Indication: OEDEMA PERIPHERAL
     Route: 065
     Dates: start: 20120418
  2. PREDNISOLONE [Suspect]
     Indication: PROSTATE CANCER METASTATIC
     Route: 048
     Dates: start: 20120502
  3. ABIRATERONE ACETATE [Suspect]
     Route: 048
  4. ABIRATERONE ACETATE [Suspect]
     Indication: PROSTATE CANCER METASTATIC
     Route: 048
     Dates: start: 20120502, end: 20120614
  5. CHINESE HERB [Suspect]
     Indication: PRODUCT USED FOR UNKNOWN INDICATION
     Route: 065

REACTIONS (2)
  - STEVENS-JOHNSON SYNDROME [None]
  - DRUG-INDUCED LIVER INJURY [None]
